FAERS Safety Report 25685261 (Version 3)
Quarter: 2025Q4

REPORT INFORMATION
  Report Type: Report from Study
  Country: US (occurrence: US)
  Receive Date: 20250815
  Receipt Date: 20251022
  Transmission Date: 20260117
  Serious: Yes (Other)
  Sender: MALLINCKRODT
  Company Number: US-MALLINCKRODT-MNK202504954

PATIENT
  Sex: Male

DRUGS (6)
  1. CORTICOTROPIN [Suspect]
     Active Substance: CORTICOTROPIN
     Indication: Rheumatoid arthritis
     Dosage: UNKNOWN
  2. RINVOQ [Concomitant]
     Active Substance: UPADACITINIB
     Dosage: UNKNOWN
  3. TYLENOL [Concomitant]
     Active Substance: ACETAMINOPHEN
     Dosage: UNKNOWN
  4. ALEVE [Concomitant]
     Active Substance: NAPROXEN SODIUM
     Dosage: UNKNOWN
  5. IBUPROFEN [Concomitant]
     Active Substance: IBUPROFEN
     Dosage: UNKNOWN
  6. COVID-19 VACCINE [Concomitant]
     Indication: COVID-19 immunisation
     Dosage: UNKNOWN

REACTIONS (8)
  - Rheumatoid lung [Not Recovered/Not Resolved]
  - Full blood count decreased [Unknown]
  - Sensitivity to weather change [Unknown]
  - Blister [Recovering/Resolving]
  - Taste disorder [Not Recovered/Not Resolved]
  - Dry skin [Unknown]
  - Oedema peripheral [Not Recovered/Not Resolved]
  - Swelling [Unknown]
